FAERS Safety Report 9119373 (Version 1)
Quarter: 2013Q1

REPORT INFORMATION
  Report Type: Spontaneous
  Country: US (occurrence: None)
  Receive Date: 20130221
  Receipt Date: 20130221
  Transmission Date: 20140127
  Serious: Yes (Hospitalization)
  Sender: FDA-Public Use
  Company Number: None

PATIENT
  Age: 49 Year
  Sex: Male
  Weight: 76.8 kg

DRUGS (1)
  1. IRINOTECAN [Suspect]
     Indication: LUNG NEOPLASM MALIGNANT
     Route: 041
     Dates: start: 20121217, end: 20130130

REACTIONS (5)
  - Pericardial effusion [None]
  - Pain [None]
  - Tachycardia [None]
  - Hypotension [None]
  - Cardiac tamponade [None]
